FAERS Safety Report 19641842 (Version 8)
Quarter: 2021Q4

REPORT INFORMATION
  Report Type: Spontaneous
  Country: CZ (occurrence: CZ)
  Receive Date: 20210731
  Receipt Date: 20211216
  Transmission Date: 20220303
  Serious: Yes (Hospitalization, Other)
  Sender: FDA-Public Use
  Company Number: CZ-OTSUKA-2021_022683

PATIENT
  Age: 63 Year
  Sex: Female

DRUGS (16)
  1. AGOMELATINE [Suspect]
     Active Substance: AGOMELATINE
     Indication: Affective disorder
     Dosage: 25 MILLIGRAM (DOSES 25-50 MG )
     Route: 065
  2. AGOMELATINE [Suspect]
     Active Substance: AGOMELATINE
     Dosage: 50 MILLIGRAM (25-50 MG, UNKNOWN)
     Route: 065
  3. ARIPIPRAZOLE [Suspect]
     Active Substance: ARIPIPRAZOLE
     Indication: Psychotic disorder
     Dosage: 15 MILLIGRAM, ONCE A DAY(15 MG, QD)
     Route: 048
  4. ARIPIPRAZOLE [Suspect]
     Active Substance: ARIPIPRAZOLE
     Indication: Attention deficit hyperactivity disorder
  5. ARIPIPRAZOLE [Suspect]
     Active Substance: ARIPIPRAZOLE
     Indication: Multimorbidity
  6. OLANZAPINE [Suspect]
     Active Substance: OLANZAPINE
     Indication: Attention deficit hyperactivity disorder
     Dosage: 20 MILLIGRAM
     Route: 065
  7. OLANZAPINE [Suspect]
     Active Substance: OLANZAPINE
     Indication: Multimorbidity
  8. OLANZAPINE [Suspect]
     Active Substance: OLANZAPINE
     Indication: Hallucination, auditory
  9. OLANZAPINE [Suspect]
     Active Substance: OLANZAPINE
     Indication: Delusion
  10. PREGABALIN [Suspect]
     Active Substance: PREGABALIN
     Indication: Psychotic disorder
     Dosage: 150 MILLIGRAM, ONCE A DAY (150 MG, QD)
     Route: 065
  11. PREGABALIN [Suspect]
     Active Substance: PREGABALIN
     Indication: Prophylaxis
  12. QUETIAPINE [Suspect]
     Active Substance: QUETIAPINE
     Indication: Attention deficit hyperactivity disorder
     Dosage: 400 MILLIGRAM (400 MILLIGRAM, QUETIAPINE PROLONG 400 MG)
     Route: 065
  13. QUETIAPINE [Suspect]
     Active Substance: QUETIAPINE
     Indication: Multimorbidity
  14. ESCITALOPRAM OXALATE [Suspect]
     Active Substance: ESCITALOPRAM OXALATE
     Indication: Attention deficit hyperactivity disorder
     Dosage: 10 MILLIGRAM, ONCE A DAY (10 MG, Q24H )
     Route: 065
  15. ESCITALOPRAM OXALATE [Suspect]
     Active Substance: ESCITALOPRAM OXALATE
     Indication: Multimorbidity
     Dosage: 10 MILLIGRAM
     Route: 065
  16. ESCITALOPRAM OXALATE [Suspect]
     Active Substance: ESCITALOPRAM OXALATE
     Indication: Depression

REACTIONS (25)
  - Delusion [Recovered/Resolved]
  - Behaviour disorder [Recovered/Resolved]
  - Hallucination, auditory [Recovered/Resolved]
  - Psychiatric decompensation [Recovered/Resolved]
  - Drug ineffective [Unknown]
  - Type 2 diabetes mellitus [Recovering/Resolving]
  - Asthenia [Recovered/Resolved]
  - Weight increased [Recovering/Resolving]
  - Somnolence [Recovered/Resolved]
  - Accelerated hypertension [Recovered/Resolved]
  - Schizoaffective disorder [Recovered/Resolved]
  - Irritability [Recovered/Resolved]
  - Dysphoria [Recovered/Resolved]
  - Sleep deficit [Recovered/Resolved]
  - Central obesity [Recovering/Resolving]
  - Euphoric mood [Recovered/Resolved]
  - Akathisia [Recovered/Resolved]
  - Tardive dyskinesia [Recovered/Resolved]
  - Affective disorder [Recovered/Resolved]
  - Therapeutic product effect incomplete [Unknown]
  - Sedation [Unknown]
  - Depression [Recovering/Resolving]
  - Psychotic disorder [Recovered/Resolved]
  - Adverse event [Unknown]
  - Adverse drug reaction [Unknown]
